FAERS Safety Report 5053379-4 (Version None)
Quarter: 2006Q2

REPORT INFORMATION
  Report Type: 
  Country: None (occurrence: None)
  Receive Date: 20060614
  Receipt Date: 20060306
  Transmission Date: 20061013
  Serious: Yes (Other)
  Sender: FDA-Public Use
  Company Number: 436186

PATIENT
  Age: 72 Year
  Sex: Female

DRUGS (5)
  1. BONIVA [Suspect]
     Indication: DRUG USE FOR UNKNOWN INDICATION
     Dates: start: 20060126
  2. EVISTA [Concomitant]
  3. ATENOLOL [Concomitant]
  4. IMURAN [Concomitant]
  5. VITAMIN NOS (VITAMIN NOS) [Concomitant]

REACTIONS (7)
  - ABDOMINAL PAIN UPPER [None]
  - ANOREXIA [None]
  - FATIGUE [None]
  - NASOPHARYNGITIS [None]
  - NAUSEA [None]
  - SOMNOLENCE [None]
  - VOMITING [None]
